FAERS Safety Report 8988918 (Version 3)
Quarter: 2013Q1

REPORT INFORMATION
  Report Type: Spontaneous
  Country: US (occurrence: US)
  Receive Date: 20121227
  Receipt Date: 20130211
  Transmission Date: 20140127
  Serious: Yes (Other)
  Sender: FDA-Public Use
  Company Number: US-FRI-1000041249

PATIENT
  Age: 64 Year
  Sex: Female

DRUGS (5)
  1. LEXAPRO [Suspect]
     Indication: ANXIETY
     Dosage: 10 MG
     Route: 048
     Dates: start: 20121116, end: 20121211
  2. LEXAPRO [Suspect]
     Indication: DEPRESSION
     Dosage: 10 MG QOD
     Route: 048
     Dates: start: 20121212, end: 20121219
  3. ASPIRIN [Concomitant]
  4. LEVOTHYROXINE [Concomitant]
     Indication: HYPOTHYROIDISM
     Dosage: 50 MCG
  5. VITAMIN B12 [Concomitant]
     Indication: HYPOVITAMINOSIS

REACTIONS (3)
  - Anal haemorrhage [Recovered/Resolved]
  - Gastric dilatation [Recovered/Resolved]
  - Off label use [Recovered/Resolved]
